FAERS Safety Report 19276202 (Version 1)
Quarter: 2021Q2

REPORT INFORMATION
  Report Type: Spontaneous
  Country: US (occurrence: US)
  Receive Date: 20210519
  Receipt Date: 20210519
  Transmission Date: 20210717
  Serious: Yes (Other)
  Sender: FDA-Public Use
  Company Number: US-SA-2021SA156497

PATIENT
  Age: 76 Year
  Sex: Male

DRUGS (1)
  1. LANTUS SOLOSTAR [Suspect]
     Active Substance: INSULIN GLARGINE
     Indication: TYPE 2 DIABETES MELLITUS
     Dosage: 10 IU, QD
     Dates: start: 2017

REACTIONS (6)
  - Skin exfoliation [Unknown]
  - Hyperkeratosis [Unknown]
  - Dry skin [Unknown]
  - Basal cell carcinoma metastatic [Unknown]
  - Erythema [Unknown]
  - Product storage error [Unknown]
